FAERS Safety Report 19280292 (Version 2)
Quarter: 2021Q3

REPORT INFORMATION
  Report Type: Report from Study
  Country: CO (occurrence: CO)
  Receive Date: 20210520
  Receipt Date: 20210726
  Transmission Date: 20211014
  Serious: Yes (Other)
  Sender: FDA-Public Use
  Company Number: NVSC2021CO106789

PATIENT
  Sex: Male
  Weight: 43 kg

DRUGS (2)
  1. OMNITROPE [Suspect]
     Active Substance: SOMATROPIN
     Indication: PRODUCT USED FOR UNKNOWN INDICATION
     Dosage: 0.8 MG, QD
     Route: 058
     Dates: start: 2017
  2. OMNITROPE [Suspect]
     Active Substance: SOMATROPIN
     Dosage: 1.6 MG, QD
     Route: 058
     Dates: start: 20190621, end: 20210315

REACTIONS (3)
  - Syncope [Unknown]
  - Product availability issue [Unknown]
  - Product dose omission issue [Unknown]
